FAERS Safety Report 5745707-9 (Version None)
Quarter: 2008Q2

REPORT INFORMATION
  Report Type: 
  Country: None (occurrence: None)
  Receive Date: 20080521
  Receipt Date: 20080513
  Transmission Date: 20081010
  Serious: Yes (Other)
  Sender: FDA-Public Use
  Company Number: CI-BOEHRINGER INGELHEIM GMBH, GERMANY-2008-DE-02792GD

PATIENT

DRUGS (6)
  1. NEVIRAPINE [Suspect]
     Indication: HUMAN IMMUNODEFICIENCY VIRUS TRANSMISSION
     Route: 064
  2. NEVIRAPINE [Suspect]
     Indication: PROPHYLAXIS
  3. ZIDOVUDINE [Suspect]
     Indication: HUMAN IMMUNODEFICIENCY VIRUS TRANSMISSION
     Route: 064
  4. ZIDOVUDINE [Suspect]
     Indication: PROPHYLAXIS
     Route: 048
  5. LAMIVUDINE [Suspect]
     Indication: HUMAN IMMUNODEFICIENCY VIRUS TRANSMISSION
     Route: 064
  6. LAMIVUDINE [Suspect]
     Indication: PROPHYLAXIS

REACTIONS (1)
  - HIV INFECTION [None]
